FAERS Safety Report 4439889-9 (Version None)
Quarter: 2004Q3

REPORT INFORMATION
  Report Type: 
  Country: None (occurrence: None)
  Receive Date: 20040831
  Receipt Date: 20040827
  Transmission Date: 20050211
  Serious: Yes (Hospitalization)
  Sender: FDA-Public Use
  Company Number: KH-2000-00007791

PATIENT
  Age: 80 Year
  Sex: Female

DRUGS (1)
  1. OXYCONTIN [Suspect]
     Indication: PAIN
     Dosage: 10 MG, Q12H, UNKNOWN

REACTIONS (2)
  - MALAISE [None]
  - NAUSEA [None]
